FAERS Safety Report 22658006 (Version 1)
Quarter: 2023Q2

REPORT INFORMATION
  Report Type: Report from Study
  Country: ES (occurrence: ES)
  Receive Date: 20230630
  Receipt Date: 20230630
  Transmission Date: 20230722
  Serious: Yes (Life-Threatening, Hospitalization, Other)
  Sender: FDA-Public Use
  Company Number: ES-BAXTER-2023BAX025082

PATIENT
  Age: 58 Year
  Sex: Male
  Weight: 81.4 kg

DRUGS (15)
  1. DOXORUBICIN [Suspect]
     Active Substance: DOXORUBICIN
     Indication: Diffuse large B-cell lymphoma
     Dosage: 50 MG/M^2, EVERY 3 WEEKS
     Route: 042
     Dates: start: 20230313
  2. CYCLOPHOSPHAMIDE [Suspect]
     Active Substance: CYCLOPHOSPHAMIDE
     Indication: Diffuse large B-cell lymphoma
     Dosage: 750 MG/M^2, EVERY 3 WEEKS
     Route: 042
     Dates: start: 20230313
  3. EPCORITAMAB [Suspect]
     Active Substance: EPCORITAMAB
     Indication: Diffuse large B-cell lymphoma
     Dosage: 48 MG CYCLES 2-4 DAYS 1, 8 AND 15 WEEKLY, EVERY 1 WEEKS
     Route: 058
     Dates: start: 20230313, end: 20230522
  4. VINCRISTINE [Suspect]
     Active Substance: VINCRISTINE
     Indication: Diffuse large B-cell lymphoma
     Dosage: 1.4 MG/M^2, EVERY 3 WEEKS
     Route: 042
     Dates: start: 20230313
  5. RITUXIMAB [Suspect]
     Active Substance: RITUXIMAB
     Indication: Diffuse large B-cell lymphoma
     Dosage: 375 MG/M^2, EVERY 3 WEEKS
     Route: 042
     Dates: start: 20230313
  6. PREDNISONE [Suspect]
     Active Substance: PREDNISONE
     Indication: Diffuse large B-cell lymphoma
     Dosage: 100 MG DAYS 1-5 EVERY 3 WEEKS, EVERY 1 DAYS
     Route: 048
     Dates: start: 20230314
  7. TRIMETHOPRIM NTN [Concomitant]
     Indication: Prophylaxis
     Dosage: 160 MG, 3/WEEKS
     Route: 065
     Dates: start: 20230321
  8. SULFAMETHOXAZOLE [Suspect]
     Active Substance: SULFAMETHOXAZOLE
     Indication: Prophylaxis
     Dosage: 800 MG, 3/WEEKS
     Route: 065
     Dates: start: 20230321
  9. Miol [Concomitant]
     Indication: Gastritis prophylaxis
     Dosage: 20 MG, EVERY 1 DAYS
     Route: 065
     Dates: start: 20230321
  10. ACYCLOVIR [Concomitant]
     Active Substance: ACYCLOVIR
     Indication: Infection prophylaxis
     Dosage: 800 MG, EVERY 1 DAYS
     Route: 065
     Dates: start: 20230331
  11. ATORVASTATINA URQUIMA [Concomitant]
     Indication: Hypertension
     Dosage: 40 MG
     Route: 065
     Dates: start: 20230404
  12. ATORVASTATINA URQUIMA [Concomitant]
     Indication: Angina pectoris
  13. RAMIPRIL UR [Concomitant]
     Indication: Hypertension
     Dosage: 10 MG, EVERY 1 DAYS
     Route: 065
  14. ACETYLSALICYLIC ACID KRKA [Concomitant]
     Indication: Hypertension
     Dosage: 100 MG, EVERY 1 DAYS
     Route: 065
     Dates: start: 2019
  15. ACETYLSALICYLIC ACID KRKA [Concomitant]
     Indication: Angina pectoris

REACTIONS (1)
  - Febrile neutropenia [Recovered/Resolved]

NARRATIVE: CASE EVENT DATE: 20230602
